FAERS Safety Report 21092250 (Version 2)
Quarter: 2022Q3

REPORT INFORMATION
  Report Type: Spontaneous
  Country: US (occurrence: US)
  Receive Date: 20220718
  Receipt Date: 20220816
  Transmission Date: 20221027
  Serious: No
  Sender: FDA-Public Use
  Company Number: US-BIOGEN-2022BI01133334

PATIENT
  Sex: Female

DRUGS (4)
  1. VUMERITY [Suspect]
     Active Substance: DIROXIMEL FUMARATE
     Indication: Multiple sclerosis
     Route: 050
     Dates: start: 20220606
  2. VUMERITY [Suspect]
     Active Substance: DIROXIMEL FUMARATE
     Dosage: MAINTENANCE DOSE
     Route: 050
     Dates: start: 202206
  3. VUMERITY [Suspect]
     Active Substance: DIROXIMEL FUMARATE
     Route: 050
     Dates: start: 202205
  4. VUMERITY [Suspect]
     Active Substance: DIROXIMEL FUMARATE
     Route: 050
     Dates: start: 20220527

REACTIONS (10)
  - Contusion [Not Recovered/Not Resolved]
  - Stomatitis [Unknown]
  - Dry skin [Unknown]
  - Rhinorrhoea [Unknown]
  - Hypersensitivity [Recovered/Resolved]
  - Hot flush [Recovered/Resolved]
  - Lip blister [Recovered/Resolved]
  - Lip disorder [Not Recovered/Not Resolved]
  - Herpes virus infection [Unknown]
  - Herpes zoster [Unknown]

NARRATIVE: CASE EVENT DATE: 20220101
